FAERS Safety Report 8513280-8 (Version None)
Quarter: 2012Q3

REPORT INFORMATION
  Report Type: 
  Country: None (occurrence: None)
  Receive Date: 20120716
  Receipt Date: 20120713
  Transmission Date: 20120928
  Serious: Yes (Death, Other)
  Sender: FDA-Public Use
  Company Number: GB-ABBOTT-12P-167-0955656-00

PATIENT
  Age: 41 Year
  Sex: Male
  Weight: 67 kg

DRUGS (15)
  1. NOREPINEPHRINE BITARTRATE [Concomitant]
     Indication: PRODUCT USED FOR UNKNOWN INDICATION
  2. AMOXICILLIN AND CLAVULANATE POTASSIUM [Concomitant]
     Indication: PRODUCT USED FOR UNKNOWN INDICATION
  3. PABRINEX [Concomitant]
     Indication: PRODUCT USED FOR UNKNOWN INDICATION
  4. OMEPRAZOLE [Concomitant]
     Indication: PRODUCT USED FOR UNKNOWN INDICATION
  5. ALFENTANIL [Concomitant]
     Indication: PRODUCT USED FOR UNKNOWN INDICATION
  6. TRAMADOL HCL [Concomitant]
     Indication: PRODUCT USED FOR UNKNOWN INDICATION
  7. PROPOFOL [Concomitant]
     Indication: PRODUCT USED FOR UNKNOWN INDICATION
  8. INSULIN [Concomitant]
     Indication: PRODUCT USED FOR UNKNOWN INDICATION
  9. ALBUTEROL SULATE [Concomitant]
     Indication: PRODUCT USED FOR UNKNOWN INDICATION
  10. ERYTHROCIN [Suspect]
     Indication: GASTROINTESTINAL INFECTION
     Route: 042
     Dates: start: 20120408
  11. ACETAMINOPHEN [Concomitant]
     Indication: PRODUCT USED FOR UNKNOWN INDICATION
  12. GENTAMICIN [Concomitant]
     Indication: PRODUCT USED FOR UNKNOWN INDICATION
  13. CLARITHROMYCIN [Suspect]
     Indication: PNEUMONIA
     Route: 042
     Dates: start: 20120404
  14. AMINOPHYLLIN [Concomitant]
     Indication: PRODUCT USED FOR UNKNOWN INDICATION
  15. TPN [Concomitant]
     Indication: PRODUCT USED FOR UNKNOWN INDICATION

REACTIONS (2)
  - PANCREATIC ABSCESS [None]
  - PANCREATITIS [None]
